FAERS Safety Report 6005794-X (Version None)
Quarter: 2008Q4

REPORT INFORMATION
  Report Type: 
  Country: None (occurrence: None)
  Receive Date: 20081217
  Receipt Date: 20071227
  Transmission Date: 20090506
  Serious: No
  Sender: FDA-Public Use
  Company Number: US-AMGEN-KDL258330

PATIENT
  Sex: Female

DRUGS (1)
  1. ENBREL [Suspect]
     Indication: PSORIASIS
     Route: 058
     Dates: start: 20050301

REACTIONS (9)
  - BOREDOM [None]
  - FATIGUE [None]
  - HYPERPHAGIA [None]
  - INJECTION SITE PAIN [None]
  - NERVOUSNESS [None]
  - OVARIAN CYST [None]
  - POLYP [None]
  - POST PROCEDURAL HAEMORRHAGE [None]
  - WEIGHT INCREASED [None]
